FAERS Safety Report 23713462 (Version 5)
Quarter: 2024Q3

REPORT INFORMATION
  Report Type: Spontaneous
  Country: PK (occurrence: PK)
  Receive Date: 20240405
  Receipt Date: 20240822
  Transmission Date: 20241017
  Serious: Yes (Hospitalization, Other)
  Sender: PFIZER
  Company Number: PK-PFIZER INC-PV202300204384

PATIENT
  Age: 36 Year
  Sex: Male
  Weight: 44 kg

DRUGS (13)
  1. IXIFI [Suspect]
     Active Substance: INFLIXIMAB-QBTX
     Indication: Ankylosing spondylitis
     Dosage: 220 MG, 5MG/KG IV, 0, 2, 6 WEEKS THEN 8-WEEKLY AFTERWARDS
     Route: 042
     Dates: start: 202312
  2. IXIFI [Suspect]
     Active Substance: INFLIXIMAB-QBTX
     Indication: Inflammatory bowel disease
  3. ANUVA [Concomitant]
     Indication: Pain
     Dosage: 50 MG 1+1 IN MORNING AND EVENING CONTINUE
  4. CAC [Concomitant]
     Dosage: 10K 1 TAB DAILY
  5. FOLIC ACID [Concomitant]
     Active Substance: FOLIC ACID
     Dosage: 5 MG, 2 TABS TUESDAYS
  6. ITOPRIDE [Concomitant]
     Active Substance: ITOPRIDE
     Dosage: 150 MG 1TAB BEFORE BREAKFAST FOR 2 WEEKS.
  7. METHOTREXATE [Concomitant]
     Active Substance: METHOTREXATE
     Dosage: 2.5MG X 3 TABLETS EVERY SATURDAY
  8. NUBEROL [Concomitant]
     Indication: Pain
     Dosage: FORTE, 1+1 IN MORNING AND EVENING, FOR 2 WEEKS
  9. RISEK [OMEPRAZOLE] [Concomitant]
     Dosage: 40MG 1 CAP IN MORNING BEFORE BREAKFAST
  10. TONOFLEX P [Concomitant]
     Indication: Pain
     Dosage: 1 TAB DAILY
  11. OSLIA [Concomitant]
     Dosage: EVERY MONTH 1 TAB
  12. ONSET [ONDANSETRON] [Concomitant]
     Dosage: 8 MG 1 TAB EVERY SAT BEFORE TX HALF AN HR
  13. CALDREE [Concomitant]
     Dosage: UNK

REACTIONS (6)
  - Spinal pain [Recovered/Resolved]
  - Back pain [Recovered/Resolved]
  - Hepatomegaly [Recovered/Resolved]
  - Diarrhoea [Unknown]
  - Dysuria [Unknown]
  - Off label use [Unknown]
